FAERS Safety Report 25863195 (Version 1)
Quarter: 2025Q3

REPORT INFORMATION
  Report Type: Report from Study
  Country: US (occurrence: US)
  Receive Date: 20250930
  Receipt Date: 20250930
  Transmission Date: 20251020
  Serious: Yes (Death, Other)
  Sender: SUNOVION
  Company Number: US-SMPA-2025SPA012633

PATIENT
  Age: 79 Year
  Sex: Male

DRUGS (7)
  1. ORGOVYX [Suspect]
     Active Substance: RELUGOLIX
     Indication: Prostate cancer
     Route: 048
  2. ORGOVYX [Suspect]
     Active Substance: RELUGOLIX
     Route: 048
  3. BENICAR [Concomitant]
     Active Substance: OLMESARTAN MEDOXOMIL
  4. CIPROFLOXACIN HYDROCHLORIDE [Concomitant]
     Active Substance: CIPROFLOXACIN HYDROCHLORIDE
  5. ELIQUIS [Concomitant]
     Active Substance: APIXABAN
  6. SYNTHROID [Concomitant]
     Active Substance: LEVOTHYROXINE SODIUM
  7. ZOCOR [Concomitant]
     Active Substance: SIMVASTATIN

REACTIONS (1)
  - Death [Fatal]
